FAERS Safety Report 15206773 (Version 1)
Quarter: 2018Q3

REPORT INFORMATION
  Report Type: Spontaneous
  Country: JP (occurrence: JP)
  Receive Date: 20180727
  Receipt Date: 20180727
  Transmission Date: 20181010
  Serious: Yes (Other)
  Sender: FDA-Public Use
  Company Number: JP-ALK-ABELLO A/S-2018AA002344

PATIENT

DRUGS (3)
  1. MITICURE MITE SUBLINGUAL TABLET [Suspect]
     Active Substance: DERMATOPHAGOIDES FARINAE\DERMATOPHAGOIDES PTERONYSSINUS
     Dosage: 10000 JAU, QD
     Route: 060
     Dates: start: 20180111, end: 20180718
  2. FEXOFENADINE [Concomitant]
     Active Substance: FEXOFENADINE\FEXOFENADINE HYDROCHLORIDE
     Indication: RHINITIS ALLERGIC
     Dosage: 60 MILLIGRAM
     Route: 048
  3. MITICURE MITE SUBLINGUAL TABLET [Suspect]
     Active Substance: DERMATOPHAGOIDES FARINAE\DERMATOPHAGOIDES PTERONYSSINUS
     Indication: RHINITIS ALLERGIC
     Dosage: 3300 JAU, QD
     Route: 060
     Dates: start: 20180104, end: 20180110

REACTIONS (2)
  - Eosinophilia [Not Recovered/Not Resolved]
  - Swelling face [Unknown]

NARRATIVE: CASE EVENT DATE: 20180705
